FAERS Safety Report 25595690 (Version 1)
Quarter: 2025Q3

REPORT INFORMATION
  Report Type: Report from Study
  Country: EU (occurrence: EU)
  Receive Date: 20250723
  Receipt Date: 20250723
  Transmission Date: 20251020
  Serious: Yes (Other)
  Sender: TEVA
  Company Number: EU-ROCHE-10000313721

PATIENT

DRUGS (13)
  1. OXALIPLATIN [Suspect]
     Active Substance: OXALIPLATIN
     Indication: Neoplasm malignant
     Route: 042
     Dates: start: 20250115
  2. OXALIPLATIN [Suspect]
     Active Substance: OXALIPLATIN
     Indication: Neoplasm malignant
     Route: 065
     Dates: start: 20250314
  3. GEMCITABINE [Suspect]
     Active Substance: GEMCITABINE
     Indication: Neoplasm malignant
     Route: 065
     Dates: start: 20240201
  4. CARBOPLATIN [Suspect]
     Active Substance: CARBOPLATIN
     Indication: Neoplasm malignant
     Route: 065
     Dates: start: 20240201
  5. LEUCOVORIN [Suspect]
     Active Substance: LEUCOVORIN\LEUCOVORIN CALCIUM
     Indication: Neoplasm malignant
     Route: 065
     Dates: start: 20250314
  6. LEUCOVORIN [Suspect]
     Active Substance: LEUCOVORIN\LEUCOVORIN CALCIUM
     Indication: Neoplasm malignant
     Route: 065
     Dates: start: 20250425
  7. LEUCOVORIN [Suspect]
     Active Substance: LEUCOVORIN\LEUCOVORIN CALCIUM
     Indication: Neoplasm malignant
     Dosage: CALCIUM FOLINATE
     Route: 042
     Dates: start: 20250115
  8. FLUOROURACIL [Suspect]
     Active Substance: FLUOROURACIL
     Indication: Neoplasm malignant
     Route: 042
     Dates: start: 20250115
  9. FLUOROURACIL [Suspect]
     Active Substance: FLUOROURACIL
     Indication: Neoplasm malignant
     Route: 042
     Dates: start: 20250314
  10. FLUOROURACIL [Suspect]
     Active Substance: FLUOROURACIL
     Indication: Neoplasm malignant
     Route: 065
     Dates: start: 20250425
  11. FLUOROURACIL [Suspect]
     Active Substance: FLUOROURACIL
     Indication: Neoplasm malignant
     Route: 042
     Dates: start: 20250425
  12. DURVALUMAB [Suspect]
     Active Substance: DURVALUMAB
     Indication: Neoplasm malignant
     Route: 065
     Dates: start: 20240201
  13. DURVALUMAB [Suspect]
     Active Substance: DURVALUMAB
     Indication: Neoplasm malignant
     Route: 065
     Dates: start: 20240503

REACTIONS (1)
  - Thrombocytopenia [Recovered/Resolved]

NARRATIVE: CASE EVENT DATE: 20250415
